FAERS Safety Report 9540372 (Version 1)
Quarter: 2013Q3

REPORT INFORMATION
  Report Type: Spontaneous
  Country: FR (occurrence: FR)
  Receive Date: 20130920
  Receipt Date: 20130920
  Transmission Date: 20140515
  Serious: Yes (Other)
  Sender: FDA-Public Use
  Company Number: PHHY2013FR104535

PATIENT
  Age: 29 Year
  Sex: Female

DRUGS (4)
  1. TEGRETOL [Suspect]
     Indication: PARTIAL SEIZURES
     Dosage: UNK UKN, UNK
     Route: 048
     Dates: start: 1993, end: 201004
  2. TRILEPTAL [Suspect]
     Indication: PARTIAL SEIZURES
     Dosage: UNK UKN, UNK
     Route: 048
     Dates: start: 201004
  3. KEPPRA [Concomitant]
     Dosage: UNK UKN, UNK
     Dates: start: 201004, end: 201103
  4. VIMPAT [Concomitant]
     Dosage: UNK UKN, UNK
     Dates: start: 201103

REACTIONS (1)
  - Vitamin D deficiency [Not Recovered/Not Resolved]
